FAERS Safety Report 25357892 (Version 2)
Quarter: 2025Q2

REPORT INFORMATION
  Report Type: Other
  Country: IN (occurrence: IN)
  Receive Date: 20250526
  Receipt Date: 20250612
  Transmission Date: 20250716
  Serious: Yes (Hospitalization, Other)
  Sender: ESJAY PHARMA
  Company Number: IN-ESJAY PHARMA-000656

PATIENT
  Sex: Male

DRUGS (1)
  1. METRONIDAZOLE [Suspect]
     Active Substance: METRONIDAZOLE
     Indication: Hepatic amoebiasis

REACTIONS (4)
  - Toxicity to various agents [Unknown]
  - Toxic neuropathy [Recovering/Resolving]
  - Skin hyperpigmentation [Unknown]
  - Toxic encephalopathy [Recovering/Resolving]
